FAERS Safety Report 8273207-3 (Version None)
Quarter: 2012Q2

REPORT INFORMATION
  Report Type: 
  Country: None (occurrence: None)
  Receive Date: 20120411
  Receipt Date: 20120410
  Transmission Date: 20120825
  Serious: Yes (Death)
  Sender: FDA-Public Use
  Company Number: CN-BAYER-2012-034600

PATIENT
  Age: 76 Year
  Sex: Male

DRUGS (10)
  1. NORMAL HUMAN IMMUNOGLOBULIN [Concomitant]
  2. METHYLPREDNISOLONE [Suspect]
     Dosage: 40 MG, QD
     Route: 042
     Dates: start: 20100217
  3. NITROGLYCERIN [Concomitant]
  4. IMIPENEM [Suspect]
     Indication: EPIDERMOLYSIS BULLOSA
     Dosage: UNK
     Dates: start: 20100204
  5. ADALAT [Concomitant]
  6. ALBUMIN (HUMAN) [Concomitant]
  7. DEXAMETHASONE [Suspect]
     Indication: EPIDERMOLYSIS BULLOSA
     Dosage: UNK
     Dates: start: 20100204
  8. METOPROLOL TARTRATE [Concomitant]
  9. MOXIFLOXACIN [Suspect]
     Dosage: UNK
     Dates: start: 20100204
  10. METHYLPREDNISOLONE [Suspect]
     Indication: EPIDERMOLYSIS BULLOSA
     Dosage: 60 MG, QD
     Route: 042
     Dates: start: 20100204

REACTIONS (1)
  - ZYGOMYCOSIS [None]
